FAERS Safety Report 7441783-6 (Version None)
Quarter: 2011Q2

REPORT INFORMATION
  Report Type: 
  Country: None (occurrence: None)
  Receive Date: 20110428
  Receipt Date: 20110420
  Transmission Date: 20111010
  Serious: Yes (Other)
  Sender: FDA-Public Use
  Company Number: US-PFIZER INC-2011086530

PATIENT
  Sex: Male

DRUGS (20)
  1. ZITHROMAX [Suspect]
     Dosage: UNK
  2. TESTOSTERONE [Concomitant]
  3. MELOXICAM [Concomitant]
  4. MOBIC [Concomitant]
  5. VALTREX [Concomitant]
  6. RITONAVIR [Concomitant]
  7. TRUVADA [Concomitant]
     Dosage: UNK
  8. LIPITOR [Concomitant]
  9. LISINOPRIL [Concomitant]
  10. CETIRIZINE HYDROCHLORIDE [Concomitant]
  11. ATORVASTATIN [Concomitant]
  12. FLOVENT [Suspect]
     Indication: EMPHYSEMA
     Dosage: 2 PUFF(S) 2/DAY
     Dates: start: 20090101
  13. ZYRTEC [Concomitant]
  14. ALBUTEROL [Concomitant]
  15. NORVIR [Concomitant]
  16. LEXAPRO [Concomitant]
  17. SALBUTAMOL [Concomitant]
  18. PREZISTA [Concomitant]
  19. PROTONIX [Concomitant]
     Dosage: UNK
  20. DICLOFENAC [Concomitant]

REACTIONS (6)
  - OESOPHAGEAL CANDIDIASIS [None]
  - FUNGAL INFECTION [None]
  - THROAT IRRITATION [None]
  - BRONCHITIS [None]
  - COUGH [None]
  - RESPIRATORY TRACT INFECTION [None]
